FAERS Safety Report 19514928 (Version 2)
Quarter: 2021Q3

REPORT INFORMATION
  Report Type: Report from Study
  Country: US (occurrence: US)
  Receive Date: 20210709
  Receipt Date: 20210729
  Transmission Date: 20211014
  Serious: Yes (Death, Life-Threatening, Hospitalization, Disabling, Other)
  Sender: FDA-Public Use
  Company Number: US-BRISTOL-MYERS SQUIBB COMPANY-BMS-2021-066266

PATIENT
  Age: 58 Year
  Sex: Male
  Weight: 104.4 kg

DRUGS (2)
  1. NIVOLUMAB [Suspect]
     Active Substance: NIVOLUMAB
     Indication: GLIOBLASTOMA
     Dosage: 980.1 MILLIGRAM
     Route: 065
     Dates: start: 20210114, end: 20210211
  2. IPILIMUMAB [Suspect]
     Active Substance: IPILIMUMAB
     Indication: GLIOBLASTOMA
     Dosage: 217.8 MILLIGRAM
     Route: 065
     Dates: start: 20210114, end: 20210211

REACTIONS (3)
  - Status epilepticus [Unknown]
  - Seizure [Recovered/Resolved]
  - Encephalitis autoimmune [Fatal]

NARRATIVE: CASE EVENT DATE: 20210219
